FAERS Safety Report 9339423 (Version 1)
Quarter: 2013Q2

REPORT INFORMATION
  Report Type: Spontaneous
  Country: US (occurrence: US)
  Receive Date: 20130610
  Receipt Date: 20130610
  Transmission Date: 20140414
  Serious: Yes (Other)
  Sender: FDA-Public Use
  Company Number: US-PFIZER INC-2013174238

PATIENT
  Age: 76 Year
  Sex: Female
  Weight: 72.56 kg

DRUGS (10)
  1. NEURONTIN [Suspect]
     Dosage: 400 MG, 3X/DAY
     Route: 048
     Dates: start: 2013
  2. BENICAR [Concomitant]
     Dosage: 40 MG, 1X/DAY
  3. OMEPRAZOLE [Concomitant]
     Dosage: 40 MG, 2X/DAY
  4. METOCLOPRAMIDE [Concomitant]
     Dosage: 10 MG, 2X/DAY
  5. LEVOCETIRIZINE [Concomitant]
     Dosage: 5 MG, 1X/DAY
  6. LIPITOR [Concomitant]
     Dosage: 40 MG, 1X/DAY
  7. CLONIDINE [Concomitant]
     Dosage: 0.3 MG, UNK
  8. BYSTOLIC [Concomitant]
     Dosage: 20 MG, 1X/DAY
  9. HYDROCHLOROTHIAZIDE/TRIAMTERENE [Concomitant]
     Dosage: HYDROCHLOROTHIAZIDE 25 MG/ TRIAMTERENE 37.5 MG
  10. NIFEDIPINE [Concomitant]
     Dosage: 30 MG, 1X/DAY

REACTIONS (5)
  - Diplopia [Unknown]
  - Diarrhoea [Unknown]
  - Insomnia [Unknown]
  - Memory impairment [Unknown]
  - Eye movement disorder [Unknown]
